FAERS Safety Report 11734288 (Version 2)
Quarter: 2015Q4

REPORT INFORMATION
  Report Type: Spontaneous
  Country: CA (occurrence: CA)
  Receive Date: 20151113
  Receipt Date: 20151127
  Transmission Date: 20160304
  Serious: No
  Sender: FDA-Public Use
  Company Number: CA-AMGEN-CANSP2015119854

PATIENT
  Age: 77 Year
  Sex: Female

DRUGS (1)
  1. ENBREL [Suspect]
     Active Substance: ETANERCEPT
     Indication: RHEUMATOID ARTHRITIS
     Dosage: UNK
     Route: 065
     Dates: start: 20110707, end: 201402

REACTIONS (2)
  - Drug ineffective [Unknown]
  - Synovitis [Unknown]

NARRATIVE: CASE EVENT DATE: 20151001
